FAERS Safety Report 20115332 (Version 1)
Quarter: 2021Q4

REPORT INFORMATION
  Report Type: Spontaneous
  Country: CA (occurrence: US)
  Receive Date: 20211125
  Receipt Date: 20211125
  Transmission Date: 20220303
  Serious: Yes (Other)
  Sender: FDA-Public Use
  Company Number: CA-SUN PHARMACEUTICAL INDUSTRIES LTD-2021R1-318661

PATIENT
  Age: 68 Year
  Sex: Female

DRUGS (4)
  1. AZITHROMYCIN [Suspect]
     Active Substance: AZITHROMYCIN
     Indication: Atopy
     Dosage: UNK
     Route: 065
  2. TERBINAFINE [Suspect]
     Active Substance: TERBINAFINE
     Indication: Atopy
     Dosage: UNK
     Route: 065
  3. CICLOPIROX [Suspect]
     Active Substance: CICLOPIROX
     Indication: Atopy
     Dosage: UNK
     Route: 061
  4. OMALIZUMAB [Suspect]
     Active Substance: OMALIZUMAB
     Indication: Atopy
     Dosage: UNK
     Route: 065

REACTIONS (1)
  - Treatment failure [Unknown]
